FAERS Safety Report 6674541-0 (Version None)
Quarter: 2010Q2

REPORT INFORMATION
  Report Type: 
  Country: None (occurrence: None)
  Receive Date: 20100409
  Receipt Date: 20100329
  Transmission Date: 20101027
  Serious: Yes (Other)
  Sender: FDA-Public Use
  Company Number: PHEH2006US10901

PATIENT
  Sex: Female

DRUGS (9)
  1. AREDIA [Suspect]
  2. ZOMETA [Suspect]
  3. PERCOCET [Concomitant]
  4. HERCEPTIN [Concomitant]
  5. PENICILLIN VK [Concomitant]
  6. PROZAC [Concomitant]
  7. PERIDEX [Concomitant]
  8. MARINOL [Concomitant]
  9. RADIATION THERAPY [Concomitant]

REACTIONS (11)
  - ANHEDONIA [None]
  - ANXIETY [None]
  - BRAIN OPERATION [None]
  - DECREASED INTEREST [None]
  - DENTAL CARIES [None]
  - GENERAL PHYSICAL HEALTH DETERIORATION [None]
  - GINGIVITIS [None]
  - MULTIPLE INJURIES [None]
  - OSTEONECROSIS [None]
  - PAIN [None]
  - TOOTH EXTRACTION [None]
